FAERS Safety Report 8145696-6 (Version None)
Quarter: 2012Q1

REPORT INFORMATION
  Report Type: 
  Country: None (occurrence: None)
  Receive Date: 20120217
  Receipt Date: 20111123
  Transmission Date: 20120608
  Serious: No
  Sender: FDA-Public Use
  Company Number: US-ALLERGAN-1115420US

PATIENT
  Age: 30 Year
  Sex: Female

DRUGS (1)
  1. TAZORAC [Suspect]
     Indication: SKIN DISORDER
     Dosage: 1 UNK, QHS
     Route: 061
     Dates: start: 20110101, end: 20110101

REACTIONS (2)
  - THERAPEUTIC RESPONSE DECREASED [None]
  - RASH [None]
